FAERS Safety Report 4875717-5 (Version None)
Quarter: 2006Q1

REPORT INFORMATION
  Report Type: 
  Country: None (occurrence: None)
  Receive Date: 20060109
  Receipt Date: 20051228
  Transmission Date: 20060701
  Serious: Yes (Hospitalization, Other)
  Sender: FDA-Public Use
  Company Number: JP-NOVOPROD-249695

PATIENT
  Age: 75 Year
  Sex: Female

DRUGS (2)
  1. NOVORAPID CHU FLEXPEN [Suspect]
     Indication: DIABETES MELLITUS
     Dosage: 48 IU, QD
     Route: 058
     Dates: start: 20040301
  2. NOVOLIN N [Suspect]
     Dosage: 16 IU, QD
     Route: 058
     Dates: start: 20040301

REACTIONS (4)
  - ANTI-INSULIN ANTIBODY [None]
  - ANTI-INSULIN ANTIBODY POSITIVE [None]
  - HYPERGLYCAEMIA [None]
  - HYPOGLYCAEMIA [None]
